FAERS Safety Report 17114366 (Version 1)
Quarter: 2019Q4

REPORT INFORMATION
  Report Type: Spontaneous
  Country: PT (occurrence: PT)
  Receive Date: 20191205
  Receipt Date: 20191205
  Transmission Date: 20200122
  Serious: Yes (Hospitalization, Other)
  Sender: FDA-Public Use
  Company Number: PT-AUROBINDO-AUR-APL-2019-103299

PATIENT
  Age: 52 Year
  Sex: Female
  Weight: 51 kg

DRUGS (10)
  1. BISOPROLOL [Suspect]
     Active Substance: BISOPROLOL
     Indication: HYPERTENSION
     Dosage: 5 MILLIGRAM, ONCE A DAY
     Route: 065
  2. FENOFIBRATE. [Suspect]
     Active Substance: FENOFIBRATE
     Indication: PRODUCT USED FOR UNKNOWN INDICATION
     Dosage: 200 MILLIGRAM, ONCE A DAY
     Route: 065
  3. METFORMIN [Suspect]
     Active Substance: METFORMIN HYDROCHLORIDE
     Indication: DIABETES MELLITUS
     Dosage: 1000 MILLIGRAM
     Route: 065
  4. TELMISARTAN+HYDROCHLOROTHIAZIDE [Suspect]
     Active Substance: HYDROCHLOROTHIAZIDE\TELMISARTAN
     Indication: HYPERTENSION
     Dosage: TELMISARTAN 80 MG AND HYDROCHLOROTHIAZIDE 12.5 (UNSPECIFIED UNIT)
     Route: 065
  5. SITAGLIPTIN [Suspect]
     Active Substance: SITAGLIPTIN
     Dosage: 100 MILLIGRAM, ONCE A DAY
     Route: 065
  6. FLUOXETINE [Suspect]
     Active Substance: FLUOXETINE HYDROCHLORIDE
     Indication: PRODUCT USED FOR UNKNOWN INDICATION
     Dosage: 20 MILLIGRAM, ONCE A DAY
     Route: 065
  7. SITAGLIPTIN [Suspect]
     Active Substance: SITAGLIPTIN
     Indication: DIABETES MELLITUS
     Dosage: 50 MILLIGRAM, 0.5 DAYS
     Route: 065
  8. VALPROIC ACID. [Suspect]
     Active Substance: VALPROIC ACID
     Indication: PRODUCT USED FOR UNKNOWN INDICATION
     Dosage: 250 MILLIGRAM, ONCE A DAY
     Route: 065
  9. OMEPRAZOLE. [Suspect]
     Active Substance: OMEPRAZOLE
     Indication: PRODUCT USED FOR UNKNOWN INDICATION
     Dosage: 20 MILLIGRAM, ONCE A DAY
     Route: 065
  10. LEVOTHYROXINE. [Suspect]
     Active Substance: LEVOTHYROXINE
     Indication: POST PROCEDURAL HYPOTHYROIDISM
     Dosage: 100 MICROGRAM, ONCE A DAY
     Route: 065

REACTIONS (2)
  - Lactic acidosis [Recovering/Resolving]
  - Diabetic metabolic decompensation [Recovering/Resolving]
